FAERS Safety Report 8336936-9 (Version None)
Quarter: 2012Q2

REPORT INFORMATION
  Report Type: 
  Country: None (occurrence: None)
  Receive Date: 20120504
  Receipt Date: 20120119
  Transmission Date: 20120825
  Serious: No
  Sender: FDA-Public Use
  Company Number: US-GLAXOSMITHKLINE-A0962222A

PATIENT
  Age: 80 Year
  Sex: Female

DRUGS (9)
  1. CLONIDINE [Concomitant]
  2. HORIZANT [Suspect]
     Indication: RESTLESS LEGS SYNDROME
     Dosage: 1TAB PER DAY
     Route: 048
     Dates: start: 20111227, end: 20111227
  3. ROPINIROLE [Concomitant]
  4. ZOCOR [Concomitant]
  5. ASPIRIN [Concomitant]
  6. ATENOLOL [Concomitant]
  7. NORVASC [Concomitant]
  8. ZETIA [Concomitant]
  9. BENICAR [Concomitant]

REACTIONS (6)
  - CRYING [None]
  - DRUG INEFFECTIVE [None]
  - INSOMNIA [None]
  - DYSKINESIA [None]
  - EMOTIONAL DISTRESS [None]
  - ADVERSE EVENT [None]
